FAERS Safety Report 7676799-8 (Version None)
Quarter: 2011Q3

REPORT INFORMATION
  Report Type: 
  Country: None (occurrence: None)
  Receive Date: 20110809
  Receipt Date: 20110809
  Transmission Date: 20111222
  Serious: No
  Sender: FDA-Public Use
  Company Number: None

PATIENT
  Age: 45 Year
  Sex: Female

DRUGS (3)
  1. EFAVIRENZ [Suspect]
     Dates: end: 20090531
  2. VIREAD [Suspect]
     Dates: end: 20090531
  3. DIDANOSINE [Suspect]
     Dates: end: 20090531

REACTIONS (10)
  - HEPATIC CONGESTION [None]
  - ASPARTATE AMINOTRANSFERASE INCREASED [None]
  - BLOOD ALKALINE PHOSPHATASE INCREASED [None]
  - HEPATIC FIBROSIS [None]
  - NODULAR REGENERATIVE HYPERPLASIA [None]
  - HEPATIC ATROPHY [None]
  - ALANINE AMINOTRANSFERASE INCREASED [None]
  - PORTAL HYPERTENSION [None]
  - LIVER DISORDER [None]
  - ASCITES [None]
